FAERS Safety Report 15213790 (Version 1)
Quarter: 2018Q3

REPORT INFORMATION
  Report Type: Spontaneous
  Country: US (occurrence: US)
  Receive Date: 20180730
  Receipt Date: 20180730
  Transmission Date: 20181010
  Serious: No
  Sender: FDA-Public Use
  Company Number: US-SA-2018SA165111

PATIENT
  Sex: Female

DRUGS (6)
  1. OSSIGEN [Concomitant]
     Dosage: UNK, UNK
     Route: 065
  2. HUMERA [Concomitant]
     Active Substance: ADALIMUMAB
     Dosage: UNK, UNK
     Route: 065
  3. PLAQUENIL S [Concomitant]
     Active Substance: HYDROXYCHLOROQUINE SULFATE
     Dosage: UNK, UNK
     Route: 065
  4. VALSARTAN. [Concomitant]
     Active Substance: VALSARTAN
     Dosage: UNK, UNK
     Route: 065
  5. ARAVA [Suspect]
     Active Substance: LEFLUNOMIDE
     Indication: RHEUMATOID ARTHRITIS
     Dosage: UNK UNK, UNK
     Route: 065
  6. METHOTREXATE. [Concomitant]
     Active Substance: METHOTREXATE
     Dosage: UNK, UNK
     Route: 048

REACTIONS (1)
  - Drug ineffective [Unknown]
